FAERS Safety Report 19806210 (Version 2)
Quarter: 2021Q3

REPORT INFORMATION
  Report Type: Spontaneous
  Country: CN (occurrence: CN)
  Receive Date: 20210909
  Receipt Date: 20210920
  Transmission Date: 20211014
  Serious: Yes (Other)
  Sender: FDA-Public Use
  Company Number: CN-TEVA-2021-CN-1949908

PATIENT
  Age: 42 Year
  Sex: Male

DRUGS (7)
  1. FLUCONAZOLE. [Suspect]
     Active Substance: FLUCONAZOLE
     Indication: ORAL CANDIDIASIS
  2. TINIDAZOLE. [Suspect]
     Active Substance: TINIDAZOLE
     Indication: ANTIFUNGAL TREATMENT
     Route: 065
  3. LEVOFLOXACIN. [Suspect]
     Active Substance: LEVOFLOXACIN
     Indication: ANTIBIOTIC THERAPY
     Route: 065
  4. TINIDAZOLE. [Suspect]
     Active Substance: TINIDAZOLE
     Indication: ORAL CANDIDIASIS
  5. FLUCONAZOLE. [Suspect]
     Active Substance: FLUCONAZOLE
     Indication: ANTIFUNGAL TREATMENT
     Route: 065
  6. AZITHROMYCIN ANHYDROUS. [Suspect]
     Active Substance: AZITHROMYCIN ANHYDROUS
     Indication: APHTHOUS ULCER
     Route: 065
  7. AMOXICILLIN. [Suspect]
     Active Substance: AMOXICILLIN
     Indication: APHTHOUS ULCER
     Route: 065

REACTIONS (4)
  - Oral lichen planus [Recovered/Resolved]
  - Intentional product misuse [Recovered/Resolved]
  - Drug ineffective [Unknown]
  - Oral candidiasis [Recovered/Resolved]
